FAERS Safety Report 22349665 (Version 1)
Quarter: 2023Q2

REPORT INFORMATION
  Report Type: Spontaneous
  Country: IN (occurrence: IN)
  Receive Date: 20230522
  Receipt Date: 20230522
  Transmission Date: 20230722
  Serious: Yes (Death, Hospitalization)
  Sender: FDA-Public Use
  Company Number: IN-MYLANLABS-2023M1051729

PATIENT
  Age: 1 Year
  Sex: Male

DRUGS (1)
  1. DEXAMETHASONE [Suspect]
     Active Substance: DEXAMETHASONE
     Indication: Hypoxia
     Dosage: 0.15 MILLIGRAM/KILOGRAM (2 DOSES)
     Route: 042

REACTIONS (1)
  - Drug ineffective [Fatal]
